FAERS Safety Report 13429202 (Version 1)
Quarter: 2017Q2

REPORT INFORMATION
  Report Type: Other
  Country: CA (occurrence: CA)
  Receive Date: 20170411
  Receipt Date: 20170411
  Transmission Date: 20170830
  Serious: Yes (Hospitalization)
  Sender: FDA-Public Use
  Company Number: CA-APOTEX-2017AP009819

PATIENT
  Age: 13 Year
  Sex: Female

DRUGS (6)
  1. NITROUS OXIDE W/OXYGEN [Suspect]
     Active Substance: NITROUS OXIDE\OXYGEN
     Indication: INDUCTION OF ANAESTHESIA
     Dosage: UNK INHALATION ROUTE
     Route: 045
  2. MIDAZOLAM [Concomitant]
     Active Substance: MIDAZOLAM HYDROCHLORIDE
     Indication: PRODUCT USED FOR UNKNOWN INDICATION
     Dosage: UNK
     Route: 048
  3. PROPOFOL. [Suspect]
     Active Substance: PROPOFOL
     Indication: GENERAL ANAESTHESIA
     Dosage: 100 MG, ONCE
     Route: 040
  4. APO-FENTANYL MATRIX [Suspect]
     Active Substance: FENTANYL
     Indication: PRODUCT USED FOR UNKNOWN INDICATION
     Dosage: 50 ?G, UNK
  5. SEVOFLURANE. [Suspect]
     Active Substance: SEVOFLURANE
     Indication: INDUCTION OF ANAESTHESIA
     Dosage: UNK INHALATION ROUTE
     Route: 045
  6. FENTANYL. [Suspect]
     Active Substance: FENTANYL
     Indication: ANAESTHESIA
     Route: 042

REACTIONS (1)
  - Extrasystoles [Not Recovered/Not Resolved]
